FAERS Safety Report 6801490-7 (Version None)
Quarter: 2010Q2

REPORT INFORMATION
  Report Type: 
  Country: None (occurrence: None)
  Receive Date: 20100629
  Receipt Date: 20100622
  Transmission Date: 20101027
  Serious: Yes (Hospitalization)
  Sender: FDA-Public Use
  Company Number: ZA-SANOFI-AVENTIS-2010SA004862

PATIENT
  Sex: Female
  Weight: 3.5 kg

DRUGS (6)
  1. LANTUS [Suspect]
     Route: 064
     Dates: start: 20090415
  2. LANTUS [Suspect]
     Route: 064
  3. SOLOSTAR [Suspect]
  4. APIDRA SOLOSTAR [Suspect]
     Indication: TYPE 1 DIABETES MELLITUS
     Route: 064
     Dates: start: 20090415
  5. APIDRA SOLOSTAR [Suspect]
     Route: 064
  6. SOLOSTAR [Suspect]

REACTIONS (2)
  - DRUG EXPOSURE DURING PREGNANCY [None]
  - JAUNDICE [None]
